FAERS Safety Report 4494148-3 (Version None)
Quarter: 2004Q4

REPORT INFORMATION
  Report Type: 
  Country: None (occurrence: None)
  Receive Date: 20041102
  Receipt Date: 20041020
  Transmission Date: 20050328
  Serious: Yes (Life-Threatening, Hospitalization, Other)
  Sender: FDA-Public Use
  Company Number: 2004081543

PATIENT
  Age: 68 Year
  Sex: Female

DRUGS (1)
  1. QUINAPRIL HCL [Suspect]
     Indication: ILL-DEFINED DISORDER
     Dosage: ORAL
     Route: 048

REACTIONS (2)
  - FIBRIN DEGRADATION PRODUCTS INCREASED [None]
  - PANCYTOPENIA [None]
